FAERS Safety Report 14258283 (Version 1)
Quarter: 2017Q4

REPORT INFORMATION
  Report Type: Spontaneous
  Country: US (occurrence: US)
  Receive Date: 20171206
  Receipt Date: 20171206
  Transmission Date: 20180321
  Serious: Yes (Other)
  Sender: FDA-Public Use
  Company Number: None

PATIENT
  Age: 77 Year
  Sex: Male
  Weight: 94.5 kg

DRUGS (16)
  1. VESICARE [Concomitant]
     Active Substance: SOLIFENACIN SUCCINATE
  2. OMEPRAZOLE. [Concomitant]
     Active Substance: OMEPRAZOLE
  3. FENOFIBRATE. [Concomitant]
     Active Substance: FENOFIBRATE
  4. VITAMIN D3 [Concomitant]
     Active Substance: CHOLECALCIFEROL
  5. VITAMIN B12 [Concomitant]
     Active Substance: CYANOCOBALAMIN
  6. AVODART [Concomitant]
     Active Substance: DUTASTERIDE
  7. LOSARTAN. [Concomitant]
     Active Substance: LOSARTAN
  8. TRULICITY [Concomitant]
     Active Substance: DULAGLUTIDE
  9. HUMALOG [Concomitant]
     Active Substance: INSULIN LISPRO
  10. CRESTOR [Concomitant]
     Active Substance: ROSUVASTATIN CALCIUM
  11. MAGNESIUM [Concomitant]
     Active Substance: MAGNESIUM
  12. FLAXSEED [Concomitant]
     Active Substance: FLAX SEED
  13. SENIOR VITAMIN [Concomitant]
  14. OMEPRAZOLE CAP 40MG [Suspect]
     Active Substance: OMEPRAZOLE
     Indication: GASTROOESOPHAGEAL REFLUX DISEASE
     Route: 048
     Dates: start: 20031215, end: 20171206
  15. METROPROLO [Concomitant]
  16. LOW DOSE ASPIRIN [Concomitant]
     Active Substance: ASPIRIN

REACTIONS (1)
  - Dependence [None]

NARRATIVE: CASE EVENT DATE: 20171206
